FAERS Safety Report 17412683 (Version 1)
Quarter: 2020Q1

REPORT INFORMATION
  Report Type: Spontaneous
  Country: BR (occurrence: BR)
  Receive Date: 20200213
  Receipt Date: 20200213
  Transmission Date: 20200409
  Serious: Yes (Hospitalization, Other)
  Sender: FDA-Public Use
  Company Number: BR-IPCA LABORATORIES LIMITED-IPC-2020-BR-000462

PATIENT

DRUGS (6)
  1. DILTIAZEM. [Suspect]
     Active Substance: DILTIAZEM
     Indication: PRODUCT USED FOR UNKNOWN INDICATION
     Dosage: 30 MILLIGRAM, BID
     Route: 065
  2. ASPIRIN. [Suspect]
     Active Substance: ASPIRIN
     Indication: ANTIPLATELET THERAPY
     Dosage: 200 MILLIGRAM
     Route: 065
  3. CLOPIDOGREL [Suspect]
     Active Substance: CLOPIDOGREL BISULFATE
     Indication: ANTIPLATELET THERAPY
     Dosage: 300 MILLIGRAM
     Route: 065
  4. ONDANSETRON [Suspect]
     Active Substance: ONDANSETRON
     Indication: NAUSEA
     Dosage: 8 MILLIGRAM
     Route: 042
  5. MORPHINE [Suspect]
     Active Substance: MORPHINE
     Indication: CHEST PAIN
     Dosage: 2 MILLIGRAM
     Route: 065
  6. NITRATE [Suspect]
     Active Substance: UNSPECIFIED INGREDIENT
     Indication: CHEST PAIN
     Dosage: UNK
     Route: 060

REACTIONS (3)
  - Acute coronary syndrome [Unknown]
  - Maternal exposure during pregnancy [Unknown]
  - Hypersensitivity [Unknown]
